FAERS Safety Report 6287413-0 (Version None)
Quarter: 2009Q3

REPORT INFORMATION
  Report Type: 
  Country: None (occurrence: None)
  Receive Date: 20090727
  Receipt Date: 20090709
  Transmission Date: 20100115
  Serious: Yes (Other)
  Sender: FDA-Public Use
  Company Number: DSA_34063_2009

PATIENT
  Sex: Female

DRUGS (4)
  1. DILTIAZEM [Suspect]
     Indication: DRUG USE FOR UNKNOWN INDICATION
     Dosage: (1 DF 1X/12 HOURS ORAL)
     Route: 048
     Dates: start: 20090101
  2. ZANTAC /00550802/ [Concomitant]
  3. VALERIAN EXTRACT [Concomitant]
  4. PARACETAMOL [Concomitant]

REACTIONS (7)
  - ASCITES [None]
  - MALAISE [None]
  - OEDEMA MOUTH [None]
  - OROPHARYNGEAL PAIN [None]
  - PHARYNGEAL OEDEMA [None]
  - SKIN DISCOLOURATION [None]
  - TREMOR [None]
